FAERS Safety Report 6248767-4 (Version None)
Quarter: 2009Q2

REPORT INFORMATION
  Report Type: 
  Country: None (occurrence: None)
  Receive Date: 20090629
  Receipt Date: 20090625
  Transmission Date: 20091009
  Serious: Yes (Hospitalization)
  Sender: FDA-Public Use
  Company Number: PT-BAYER-200924094GPV

PATIENT
  Age: 76 Year
  Sex: Male
  Weight: 60 kg

DRUGS (5)
  1. NEXAVAR [Suspect]
     Indication: HEPATIC NEOPLASM MALIGNANT
     Dosage: TOTAL DAILY DOSE: 200 MG
     Route: 048
     Dates: start: 20090427
  2. LISINOPRIL [Concomitant]
     Indication: HYPERTENSION
  3. HYDROCHLOROTHIAZIDE [Concomitant]
     Indication: HYPERTENSION
     Route: 048
  4. NIFEDIPINE [Concomitant]
     Indication: HYPERTENSION
  5. AMINOCAPROIC ACID [Concomitant]
     Route: 048
     Dates: start: 20090201, end: 20090413

REACTIONS (1)
  - DEEP VEIN THROMBOSIS [None]
